FAERS Safety Report 4778759-3 (Version None)
Quarter: 2005Q3

REPORT INFORMATION
  Report Type: 
  Country: None (occurrence: None)
  Receive Date: 20050922
  Receipt Date: 20050909
  Transmission Date: 20060218
  Serious: Yes (Other)
  Sender: FDA-Public Use
  Company Number: 2005127100

PATIENT
  Age: 67 Year
  Sex: Female

DRUGS (4)
  1. AROMASIN [Suspect]
     Indication: BREAST CANCER
     Dates: start: 20050601
  2. DIOSMINE (DIOSMIN) [Concomitant]
  3. OXAZEPAM [Concomitant]
  4. ACETYLSALICYLATE LYSINE [Concomitant]

REACTIONS (1)
  - PHLEBITIS [None]
